FAERS Safety Report 8315003-4 (Version None)
Quarter: 2012Q2

REPORT INFORMATION
  Report Type: 
  Country: None (occurrence: None)
  Receive Date: 20120426
  Receipt Date: 20120223
  Transmission Date: 20120825
  Serious: No
  Sender: FDA-Public Use
  Company Number: US-MUTUAL PHARMACEUTICAL COMPANY, INC.-CLCY20120036

PATIENT
  Age: 58 Year
  Sex: Female

DRUGS (1)
  1. COLCRYS [Suspect]
     Indication: GOUT
     Route: 048
     Dates: start: 20120207, end: 20120201

REACTIONS (1)
  - DIARRHOEA [None]
